FAERS Safety Report 10905240 (Version 1)
Quarter: 2015Q1

REPORT INFORMATION
  Report Type: Spontaneous
  Country: US (occurrence: US)
  Receive Date: 20150311
  Receipt Date: 20150311
  Transmission Date: 20150721
  Serious: No
  Sender: FDA-Public Use
  Company Number: US-ASTRAZENECA-2015SE22190

PATIENT

DRUGS (1)
  1. NEXIUM [Suspect]
     Active Substance: ESOMEPRAZOLE MAGNESIUM
     Dosage: UNK, TWO TIMES A DAY
     Route: 048

REACTIONS (3)
  - Drug effect incomplete [Unknown]
  - Abdominal pain lower [Unknown]
  - Intentional product misuse [Unknown]
